FAERS Safety Report 6338204-3 (Version None)
Quarter: 2009Q3

REPORT INFORMATION
  Report Type: 
  Country: None (occurrence: None)
  Receive Date: 20090902
  Receipt Date: 20090819
  Transmission Date: 20100115
  Serious: No
  Sender: FDA-Public Use
  Company Number: JP-PFIZER INC-2009176566

PATIENT
  Age: 28 Year

DRUGS (2)
  1. SOMATROPIN [Suspect]
     Indication: GROWTH HORMONE DEFICIENCY
     Dosage: UNK
     Route: 058
     Dates: start: 20090212, end: 20090226
  2. SOMATROPIN [Suspect]
     Dosage: 0.7 MG,WEEKLY/7TIMES
     Dates: start: 20090312, end: 20090619

REACTIONS (1)
  - IRRITABILITY [None]
